FAERS Safety Report 8295465-1 (Version None)
Quarter: 2012Q2

REPORT INFORMATION
  Report Type: 
  Country: None (occurrence: None)
  Receive Date: 20120418
  Receipt Date: 20120412
  Transmission Date: 20120825
  Serious: Yes (Other)
  Sender: FDA-Public Use
  Company Number: US-CELGENEUS-163-21880-12041458

PATIENT
  Sex: Female

DRUGS (9)
  1. MULTI-VITAMINS [Concomitant]
     Route: 065
  2. CO Q 10 [Concomitant]
     Route: 065
  3. REVLIMID [Suspect]
     Indication: MYELODYSPLASTIC SYNDROME
     Dosage: 5 MILLIGRAM
     Route: 048
     Dates: start: 20120322
  4. LANTUS [Concomitant]
     Route: 065
  5. ALLOPURINOL [Concomitant]
     Route: 065
  6. FERROUS SULFATE TAB [Concomitant]
     Route: 065
  7. IRON [Concomitant]
     Route: 065
  8. FOLIC ACID [Concomitant]
     Route: 065
  9. DILTIAZEM HCL [Concomitant]
     Route: 065

REACTIONS (7)
  - ATRIAL FIBRILLATION [None]
  - DIABETES MELLITUS [None]
  - PNEUMONIA [None]
  - HYPERTENSION [None]
  - ANAEMIA HAEMOLYTIC AUTOIMMUNE [None]
  - FULL BLOOD COUNT DECREASED [None]
  - CARDIAC FAILURE CONGESTIVE [None]
